FAERS Safety Report 4442502-8 (Version None)
Quarter: 2004Q3

REPORT INFORMATION
  Report Type: 
  Country: None (occurrence: None)
  Receive Date: 20040903
  Receipt Date: 20040729
  Transmission Date: 20050211
  Serious: Yes (Other)
  Sender: FDA-Public Use
  Company Number: 2004UW16107

PATIENT
  Sex: Male
  Weight: 73.4827 kg

DRUGS (5)
  1. CRESTOR [Suspect]
     Indication: BLOOD CHOLESTEROL INCREASED
  2. CRESTOR [Suspect]
     Indication: BLOOD CHOLESTEROL INCREASED
  3. PROSCAR [Concomitant]
  4. FLOMAX [Concomitant]
  5. FOSAMAX [Concomitant]

REACTIONS (4)
  - DIZZINESS [None]
  - FEELING ABNORMAL [None]
  - MUSCLE TWITCHING [None]
  - PARAESTHESIA [None]
